FAERS Safety Report 11539255 (Version 1)
Quarter: 2015Q3

REPORT INFORMATION
  Report Type: Spontaneous
  Country: US (occurrence: US)
  Receive Date: 20150923
  Receipt Date: 20150923
  Transmission Date: 20151125
  Serious: No
  Sender: FDA-Public Use
  Company Number: US-PFIZER INC-2015308383

PATIENT
  Age: 67 Year
  Sex: Female
  Weight: 79.37 kg

DRUGS (1)
  1. LYRICA [Suspect]
     Active Substance: PREGABALIN
     Indication: FIBROMYALGIA
     Dosage: 300 MG, 1X/DAY (100 MG, 3 CAPSULES BY MOUTH AT BED TIME)
     Route: 048
     Dates: start: 2011, end: 20150905

REACTIONS (4)
  - Formication [Unknown]
  - Hair disorder [Unknown]
  - Pain in extremity [Unknown]
  - Pain [Unknown]
